FAERS Safety Report 10502653 (Version 1)
Quarter: 2014Q4

REPORT INFORMATION
  Report Type: Spontaneous
  Country: FR (occurrence: FR)
  Receive Date: 20141007
  Receipt Date: 20141007
  Transmission Date: 20150528
  Serious: Yes (Hospitalization, Other)
  Sender: FDA-Public Use
  Company Number: FR-PFIZER INC-2014270956

PATIENT
  Age: 61 Year
  Sex: Male

DRUGS (10)
  1. IFOSFAMIDE EG [Suspect]
     Active Substance: IFOSFAMIDE
     Indication: LYMPHOMA
     Dosage: 9800 MG, DAILY
     Route: 042
     Dates: start: 20140826, end: 20140827
  2. LYRICA [Suspect]
     Active Substance: PREGABALIN
     Indication: PAIN
     Dosage: 25 MG, 3X/DAY
     Route: 048
     Dates: start: 20140825, end: 20140827
  3. CARBOPLATIN HOSPIRA [Suspect]
     Active Substance: CARBOPLATIN
     Indication: LYMPHOMA
     Dosage: 680 MG, DAILY
     Route: 042
     Dates: start: 20140826, end: 20140826
  4. ETOPOSIDE MYLAN [Suspect]
     Active Substance: ETOPOSIDE
     Indication: LYMPHOMA
     Dosage: 196 MG, DAILY
     Route: 042
     Dates: start: 20140825, end: 20140827
  5. ZOPHREN [Concomitant]
     Active Substance: ONDANSETRON
     Indication: PREMEDICATION
     Dosage: UNK
     Dates: start: 20140925, end: 20140927
  6. UROMITEXAN [Concomitant]
     Active Substance: MESNA
     Indication: PREMEDICATION
     Dosage: UNK
     Dates: start: 20140925, end: 20140927
  7. LASILIX [Suspect]
     Active Substance: FUROSEMIDE
     Indication: OEDEMA PERIPHERAL
     Dosage: 40 MG, 1X/DAY
     Route: 048
     Dates: start: 20140810, end: 20140830
  8. ACICLOVIR [Concomitant]
     Active Substance: ACYCLOVIR
     Route: 042
  9. SOLU-MEDROL [Concomitant]
     Active Substance: METHYLPREDNISOLONE SODIUM SUCCINATE
     Indication: PREMEDICATION
     Dosage: UNK
     Dates: start: 20140925, end: 20140927
  10. ZELITREX [Concomitant]
     Active Substance: VALACYCLOVIR HYDROCHLORIDE

REACTIONS (5)
  - Encephalopathy [Recovered/Resolved]
  - Confusional state [Unknown]
  - Aphasia [Unknown]
  - Blood magnesium decreased [Unknown]
  - Hypokalaemia [Unknown]

NARRATIVE: CASE EVENT DATE: 20140827
